APPROVED DRUG PRODUCT: OMEPRAZOLE AND SODIUM BICARBONATE
Active Ingredient: OMEPRAZOLE; SODIUM BICARBONATE
Strength: 40MG/PACKET;1.68GM/PACKET
Dosage Form/Route: FOR SUSPENSION;ORAL
Application: A219161 | Product #002 | TE Code: AB
Applicant: NOVITIUM PHARMA LLC
Approved: Dec 10, 2025 | RLD: No | RS: No | Type: RX